FAERS Safety Report 9246713 (Version 1)
Quarter: 2013Q2

REPORT INFORMATION
  Report Type: Spontaneous
  Country: US (occurrence: US)
  Receive Date: 20130422
  Receipt Date: 20130422
  Transmission Date: 20140414
  Serious: Yes (Other)
  Sender: FDA-Public Use
  Company Number: US-PFIZER INC-2013125371

PATIENT
  Age: 56 Year
  Sex: Female
  Weight: 113 kg

DRUGS (1)
  1. LYRICA [Suspect]
     Indication: DIABETIC NEUROPATHY
     Dosage: 200MG IN THE MORNING AND 100MG AT NIGHT (2X/DAY)

REACTIONS (1)
  - Endometrial cancer [Unknown]
